FAERS Safety Report 19559721 (Version 1)
Quarter: 2021Q3

REPORT INFORMATION
  Report Type: Report from Study
  Country: FR (occurrence: FR)
  Receive Date: 20210715
  Receipt Date: 20210715
  Transmission Date: 20211014
  Serious: Yes (Other)
  Sender: FDA-Public Use
  Company Number: FR-TAKEDA-2021TUS042072

PATIENT
  Age: 74 Year
  Sex: Female

DRUGS (17)
  1. TEDUGLUTIDE [Suspect]
     Active Substance: TEDUGLUTIDE
     Indication: PRODUCT USED FOR UNKNOWN INDICATION
     Dosage: 0.053 MILLIGRAM, QD
     Route: 065
     Dates: start: 20160628, end: 20190711
  2. TEDUGLUTIDE [Suspect]
     Active Substance: TEDUGLUTIDE
     Dosage: 3.6 MILLIGRAM, QD
     Route: 065
     Dates: start: 20190712, end: 20191209
  3. TEDUGLUTIDE [Suspect]
     Active Substance: TEDUGLUTIDE
     Dosage: 3.4 MILLIGRAM, QD
     Route: 065
     Dates: start: 20191210
  4. TAZOCILLINE [Concomitant]
     Active Substance: PIPERACILLIN SODIUM\TAZOBACTAM SODIUM
     Indication: INFECTION
     Dosage: 4 UNK, TID
     Dates: start: 20200205, end: 20200212
  5. TEDUGLUTIDE [Suspect]
     Active Substance: TEDUGLUTIDE
     Indication: PRODUCT USED FOR UNKNOWN INDICATION
     Dosage: 0.053 MILLIGRAM, QD
     Route: 065
     Dates: start: 20160628, end: 20190711
  6. TEDUGLUTIDE [Suspect]
     Active Substance: TEDUGLUTIDE
     Dosage: 3.6 MILLIGRAM, QD
     Route: 065
     Dates: start: 20190712, end: 20191209
  7. MONURIL [Concomitant]
     Active Substance: FOSFOMYCIN TROMETHAMINE
     Indication: URINARY TRACT INFECTION
  8. AMIKACINE [Concomitant]
     Active Substance: AMIKACIN
     Indication: INFECTION
     Dosage: 1.50 GRAM
     Route: 065
     Dates: start: 20200210, end: 20200212
  9. TEDUGLUTIDE [Suspect]
     Active Substance: TEDUGLUTIDE
     Dosage: 3.4 MILLIGRAM, QD
     Route: 065
     Dates: start: 20191210
  10. TEDUGLUTIDE [Suspect]
     Active Substance: TEDUGLUTIDE
     Indication: PRODUCT USED FOR UNKNOWN INDICATION
     Dosage: 0.053 MILLIGRAM, QD
     Route: 065
     Dates: start: 20160628, end: 20190711
  11. TEDUGLUTIDE [Suspect]
     Active Substance: TEDUGLUTIDE
     Dosage: 3.6 MILLIGRAM, QD
     Route: 065
     Dates: start: 20190712, end: 20191209
  12. TEDUGLUTIDE [Suspect]
     Active Substance: TEDUGLUTIDE
     Dosage: 3.6 MILLIGRAM, QD
     Route: 065
     Dates: start: 20190712, end: 20191209
  13. TEDUGLUTIDE [Suspect]
     Active Substance: TEDUGLUTIDE
     Dosage: 3.4 MILLIGRAM, QD
     Route: 065
     Dates: start: 20191210
  14. MONURIL [Concomitant]
     Active Substance: FOSFOMYCIN TROMETHAMINE
     Indication: PROPHYLAXIS
     Dosage: 1 INTERNATIONAL UNIT, 1/WEEK
     Route: 048
     Dates: start: 20200213
  15. TEDUGLUTIDE [Suspect]
     Active Substance: TEDUGLUTIDE
     Indication: PRODUCT USED FOR UNKNOWN INDICATION
     Dosage: 0.053 MILLIGRAM, QD
     Route: 065
     Dates: start: 20160628, end: 20190711
  16. TEDUGLUTIDE [Suspect]
     Active Substance: TEDUGLUTIDE
     Dosage: 3.4 MILLIGRAM, QD
     Route: 065
     Dates: start: 20191210
  17. CLINDAMYCIN. [Concomitant]
     Active Substance: CLINDAMYCIN
     Indication: INFECTION
     Dosage: 600 MILLIGRAM, TID
     Route: 048
     Dates: start: 20200205, end: 20200212

REACTIONS (5)
  - Serum ferritin decreased [Recovered/Resolved]
  - Gastrointestinal tract mucosal discolouration [Recovered/Resolved]
  - Rectal haemorrhage [Recovered/Resolved]
  - Blood iron decreased [Recovered/Resolved]
  - Leukopenia [Recovered/Resolved]

NARRATIVE: CASE EVENT DATE: 20161213
